FAERS Safety Report 6636138-8 (Version None)
Quarter: 2010Q1

REPORT INFORMATION
  Report Type: 
  Country: None (occurrence: None)
  Receive Date: 20100225
  Receipt Date: 20091028
  Transmission Date: 20100710
  Serious: Yes (Other)
  Sender: FDA-Public Use
  Company Number: US-JNJFOC-20091009272

PATIENT
  Sex: Female
  Weight: 47.6277 kg

DRUGS (1)
  1. MOTRIN [Suspect]
     Indication: NEURALGIA
     Dosage: 400 MG, 2 IN 1 DAY, ORAL
     Route: 048

REACTIONS (2)
  - BLOOD URINE PRESENT [None]
  - ULCER HAEMORRHAGE [None]
